FAERS Safety Report 5668703-9 (Version None)
Quarter: 2008Q1

REPORT INFORMATION
  Report Type: 
  Country: None (occurrence: None)
  Receive Date: 20080317
  Receipt Date: 20080304
  Transmission Date: 20080703
  Serious: Yes (Life-Threatening)
  Sender: FDA-Public Use
  Company Number: GB-RANBAXY-2008RR-13492

PATIENT

DRUGS (3)
  1. ATENOLOL [Suspect]
     Route: 065
  2. EPINEPHRINE [Concomitant]
     Route: 065
  3. HYDROCORTISONE [Concomitant]
     Route: 065

REACTIONS (1)
  - PHAEOCHROMOCYTOMA [None]
